FAERS Safety Report 19769463 (Version 1)
Quarter: 2021Q3

REPORT INFORMATION
  Report Type: Spontaneous
  Country: US (occurrence: US)
  Receive Date: 20210831
  Receipt Date: 20210831
  Transmission Date: 20211014
  Serious: No
  Sender: FDA-Public Use
  Company Number: None

PATIENT
  Age: 35 Year
  Sex: Female
  Weight: 69.3 kg

DRUGS (7)
  1. GABAPENTIN 300 MG CAPSULES [Suspect]
     Active Substance: GABAPENTIN
     Indication: OSTEOARTHRITIS
     Dates: start: 20210826, end: 20210831
  2. MELOXICAM. [Concomitant]
     Active Substance: MELOXICAM
  3. PREDNISONE. [Concomitant]
     Active Substance: PREDNISONE
  4. ALPRAZOLAM. [Concomitant]
     Active Substance: ALPRAZOLAM
  5. METOPROLOL. [Concomitant]
     Active Substance: METOPROLOL
  6. GABAPENTIN 300 MG CAPSULES [Suspect]
     Active Substance: GABAPENTIN
     Indication: NEURALGIA
     Dates: start: 20210826, end: 20210831
  7. TRAMADOL 50 MG TABLETS [Suspect]
     Active Substance: TRAMADOL

REACTIONS (3)
  - Hypopnoea [None]
  - Depressed level of consciousness [None]
  - Anxiety [None]

NARRATIVE: CASE EVENT DATE: 20210830
